FAERS Safety Report 15659419 (Version 2)
Quarter: 2019Q1

REPORT INFORMATION
  Report Type: Report from Study
  Country: CA (occurrence: CA)
  Receive Date: 20181127
  Receipt Date: 20190219
  Transmission Date: 20190417
  Serious: Yes (Hospitalization, Other)
  Sender: FDA-Public Use
  Company Number: CA-ROCHE-2043765

PATIENT
  Age: 77 Year
  Sex: Male

DRUGS (8)
  1. AVAPRO [Concomitant]
     Active Substance: IRBESARTAN
  2. LIPITOR [Concomitant]
     Active Substance: ATORVASTATIN CALCIUM
  3. NIFEDIPINE. [Concomitant]
     Active Substance: NIFEDIPINE
  4. ZOPICLONE [Concomitant]
     Active Substance: ZOPICLONE
  5. ACETYLSALICYLIC ACID [Concomitant]
     Active Substance: ASPIRIN
     Route: 065
  6. AMIODARONE [Concomitant]
     Active Substance: AMIODARONE
  7. FLU VACCINE [Concomitant]
     Active Substance: INFLUENZA VIRUS VACCINE
     Indication: ANTIVIRAL PROPHYLAXIS
     Route: 065
     Dates: start: 20181105, end: 20181105
  8. TECENTRIQ [Suspect]
     Active Substance: ATEZOLIZUMAB
     Indication: TRANSITIONAL CELL CARCINOMA
     Route: 042
     Dates: start: 20171016

REACTIONS (24)
  - Oropharyngeal pain [Unknown]
  - Pneumonia [Unknown]
  - Vomiting [Unknown]
  - Diarrhoea [Unknown]
  - Heart rate increased [Unknown]
  - Fatigue [Not Recovered/Not Resolved]
  - Pruritus [Not Recovered/Not Resolved]
  - Intestinal obstruction [Unknown]
  - Nasal congestion [Recovered/Resolved]
  - Gait disturbance [Unknown]
  - Vomiting [Unknown]
  - Malaise [Unknown]
  - Dyspnoea [Recovered/Resolved]
  - Cough [Unknown]
  - Influenza [Not Recovered/Not Resolved]
  - Haemoglobin decreased [Not Recovered/Not Resolved]
  - Haematemesis [Unknown]
  - Constipation [Not Recovered/Not Resolved]
  - Bone pain [Recovered/Resolved]
  - Asthenia [Unknown]
  - Urticaria [Not Recovered/Not Resolved]
  - Dyspnoea [Not Recovered/Not Resolved]
  - Atrial fibrillation [Unknown]
  - Pneumonia [Unknown]

NARRATIVE: CASE EVENT DATE: 201712
